FAERS Safety Report 5582790-8 (Version None)
Quarter: 2007Q4

REPORT INFORMATION
  Report Type: 
  Country: None (occurrence: None)
  Receive Date: 20071231
  Receipt Date: 20071214
  Transmission Date: 20080405
  Serious: Yes (Other)
  Sender: FDA-Public Use
  Company Number: POMP-11244

PATIENT
  Age: 33 Month
  Sex: Male
  Weight: 11.5 kg

DRUGS (2)
  1. MYOZYME [Suspect]
     Indication: GLYCOGEN STORAGE DISEASE TYPE II
     Dosage: 20 MG/KG, Q2W, INTRAVENOUS
     Route: 042
     Dates: start: 20070827
  2. AMOXICILLIN [Concomitant]

REACTIONS (3)
  - ECZEMA [None]
  - LICHEN PLANUS [None]
  - STAPHYLOCOCCAL INFECTION [None]
